FAERS Safety Report 5751967-0 (Version None)
Quarter: 2008Q2

REPORT INFORMATION
  Report Type: 
  Country: None (occurrence: None)
  Receive Date: 20080527
  Receipt Date: 20080516
  Transmission Date: 20081010
  Serious: Yes (Hospitalization)
  Sender: FDA-Public Use
  Company Number: JPI-P-003679

PATIENT
  Sex: Male

DRUGS (4)
  1. XYREM [Suspect]
     Indication: CATAPLEXY
     Dosage: ORAL; 12 GM (6 GM, 2 IN 1 D), ORAL
     Route: 048
  2. XYREM [Suspect]
     Indication: NARCOLEPSY
     Dosage: ORAL; 12 GM (6 GM, 2 IN 1 D), ORAL
     Route: 048
  3. PAROXETINE HCL [Concomitant]
  4. UNSPECIFIED STIMULANTS (ALL OTHER THERAPEUTIC PRODUCTS) [Concomitant]

REACTIONS (9)
  - ABNORMAL BEHAVIOUR [None]
  - AGITATION [None]
  - BIPOLAR DISORDER [None]
  - DYSPNOEA [None]
  - INSOMNIA [None]
  - MANIA [None]
  - MOOD ALTERED [None]
  - SOMNAMBULISM [None]
  - THINKING ABNORMAL [None]
